FAERS Safety Report 15881255 (Version 2)
Quarter: 2019Q1

REPORT INFORMATION
  Report Type: Report from Study
  Country: US (occurrence: US)
  Receive Date: 20190128
  Receipt Date: 20190222
  Transmission Date: 20190417
  Serious: Yes (Hospitalization)
  Sender: FDA-Public Use
  Company Number: US-ACTELION-A-NJ2018-170123

PATIENT
  Age: 60 Year
  Sex: Male
  Weight: 104.31 kg

DRUGS (3)
  1. OPSUMIT [Suspect]
     Active Substance: MACITENTAN
     Indication: PULMONARY ARTERIAL HYPERTENSION
     Dosage: 10 MG, QD
     Route: 048
  2. ELIQUIS [Concomitant]
     Active Substance: APIXABAN
  3. OXYGEN. [Concomitant]
     Active Substance: OXYGEN

REACTIONS (5)
  - Hospitalisation [Unknown]
  - Oxygen saturation decreased [Unknown]
  - Syncope [Unknown]
  - Dyspnoea exertional [Unknown]
  - Dyspnoea [Unknown]
